FAERS Safety Report 22131068 (Version 1)
Quarter: 2023Q1

REPORT INFORMATION
  Report Type: Spontaneous
  Country: IT (occurrence: IT)
  Receive Date: 20230323
  Receipt Date: 20230323
  Transmission Date: 20230417
  Serious: Yes (Death, Hospitalization)
  Sender: FDA-Public Use
  Company Number: IT-TEVA-2023-IT-2868440

PATIENT
  Sex: Female

DRUGS (7)
  1. CISPLATIN [Suspect]
     Active Substance: CISPLATIN
     Indication: Cholangiocarcinoma
     Dosage: THIRD CYCLE
     Route: 065
  2. ACETYLCYSTEINE [Suspect]
     Active Substance: ACETYLCYSTEINE
     Indication: Cholangiocarcinoma
     Dosage: 1 DOSAGE FORMS DAILY;
     Route: 048
  3. VITAMIN C [Suspect]
     Active Substance: ASCORBIC ACID
     Indication: Cholangiocarcinoma
     Dosage: 1 DOSAGE FORMS DAILY;
     Route: 048
  4. ADRIAMYCIN [Suspect]
     Active Substance: DOXORUBICIN HYDROCHLORIDE
     Indication: Cholangiocarcinoma
     Route: 065
     Dates: start: 201908
  5. ADRIAMYCIN [Suspect]
     Active Substance: DOXORUBICIN HYDROCHLORIDE
     Dosage: THIRD CYCLE
     Route: 065
  6. VITAMIN D [Suspect]
     Active Substance: VITAMIN D NOS
     Indication: Cholangiocarcinoma
     Route: 048
  7. DIETARY SUPPLEMENT [Suspect]
     Active Substance: DIETARY SUPPLEMENT
     Indication: Cholangiocarcinoma
     Dosage: 2 DOSAGE FORMS DAILY;
     Route: 048

REACTIONS (5)
  - Drug ineffective [Fatal]
  - Fatigue [Unknown]
  - Nausea [Unknown]
  - Vomiting [Unknown]
  - Weight decreased [Unknown]
